FAERS Safety Report 13880750 (Version 2)
Quarter: 2017Q3

REPORT INFORMATION
  Report Type: Spontaneous
  Country: NG (occurrence: NG)
  Receive Date: 20170818
  Receipt Date: 20170822
  Transmission Date: 20171127
  Serious: Yes (Hospitalization)
  Sender: FDA-Public Use
  Company Number: NG-JNJFOC-20170814525

PATIENT
  Age: 65 Year
  Sex: Female

DRUGS (7)
  1. AUGMENTIN [Concomitant]
     Active Substance: AMOXICILLIN\CLAVULANATE POTASSIUM
     Dosage: DOSAGE: UNKNOWN
     Route: 048
  2. DICLOFENAC [Concomitant]
     Active Substance: DICLOFENAC
     Dosage: DOSAGE: UNKNOWN
     Route: 065
  3. PENTAZOCINE [Concomitant]
     Active Substance: PENTAZOCINE
     Dosage: DOSAGE: UNKNOWN
     Route: 065
  4. CEFUROXIME. [Concomitant]
     Active Substance: CEFUROXIME
     Dosage: DOSAGE: UNKNOWN
     Route: 042
  5. CLEXANE [Concomitant]
     Active Substance: ENOXAPARIN SODIUM
     Dosage: DOSAGE: UNKNOWN
     Route: 058
  6. XARELTO [Suspect]
     Active Substance: RIVAROXABAN
     Indication: HIP ARTHROPLASTY
     Route: 048
     Dates: start: 201706, end: 201707
  7. PARACETAMOL [Concomitant]
     Active Substance: ACETAMINOPHEN
     Dosage: DOSAGE: UNKNOWN
     Route: 065

REACTIONS (2)
  - Deep vein thrombosis [Unknown]
  - Peripheral swelling [Unknown]

NARRATIVE: CASE EVENT DATE: 20170715
